FAERS Safety Report 5494376-4 (Version None)
Quarter: 2007Q4

REPORT INFORMATION
  Report Type: 
  Country: None (occurrence: None)
  Receive Date: 20071022
  Receipt Date: 20071005
  Transmission Date: 20080405
  Serious: Yes (Other)
  Sender: FDA-Public Use
  Company Number: VNL_00799_2007

PATIENT
  Sex: Female

DRUGS (1)
  1. APO-GO (APO-GO - APOMORPHINE  HYDROCHLORIDE (NOT SPECIFIED) [Suspect]
     Indication: PARKINSON'S DISEASE
     Dosage: 5 MG PER HOUR DURING WAKING DAY, SUBCUTANEOUS
     Route: 058
     Dates: start: 20061001

REACTIONS (4)
  - COOMBS TEST POSITIVE [None]
  - HAEMOGLOBIN DECREASED [None]
  - ILL-DEFINED DISORDER [None]
  - SOMNOLENCE [None]
